FAERS Safety Report 4382427-X (Version None)
Quarter: 2004Q2

REPORT INFORMATION
  Report Type: 
  Country: None (occurrence: None)
  Receive Date: 20040617
  Receipt Date: 20040608
  Transmission Date: 20050107
  Serious: Yes (Death)
  Sender: FDA-Public Use
  Company Number: 2004-06-0452

PATIENT
  Age: 38 Year
  Sex: Male
  Weight: 125 kg

DRUGS (2)
  1. PEG-INTERFERON ALFA-2B INJECTABLE POWDER [Suspect]
     Indication: HEPATITIS C
     Dosage: 75 MCG QWK SUBCUTANEOUS
     Route: 058
     Dates: start: 20031119, end: 20040526
  2. RIBAVIRIN [Suspect]
     Indication: HEPATITIS C
     Dosage: 600 MG QD ORAL
     Route: 048
     Dates: start: 20031119, end: 20040526

REACTIONS (2)
  - DIARRHOEA [None]
  - VOMITING [None]
